FAERS Safety Report 8740502 (Version 2)
Quarter: 2013Q4

REPORT INFORMATION
  Report Type: Spontaneous
  Country: US (occurrence: US)
  Receive Date: 20120823
  Receipt Date: 20131101
  Transmission Date: 20140711
  Serious: No
  Sender: FDA-Public Use
  Company Number: US-009507513-1208USA006812

PATIENT
  Sex: Female

DRUGS (3)
  1. VICTRELIS [Suspect]
     Indication: HEPATITIS C
     Dosage: 4 DF, TID
     Route: 048
  2. PEGINTRON [Suspect]
     Route: 058
  3. REBETOL [Suspect]
     Dosage: UNK
     Route: 048

REACTIONS (2)
  - Product taste abnormal [Not Recovered/Not Resolved]
  - Nausea [Not Recovered/Not Resolved]
